FAERS Safety Report 5223529-5 (Version None)
Quarter: 2007Q1

REPORT INFORMATION
  Report Type: 
  Country: None (occurrence: None)
  Receive Date: 20070125
  Receipt Date: 20070118
  Transmission Date: 20070707
  Serious: Yes (Other)
  Sender: FDA-Public Use
  Company Number: 2006S1000240

PATIENT
  Age: 7 Year
  Sex: Female
  Weight: 21.7727 kg

DRUGS (3)
  1. LUXIQ [Suspect]
     Indication: ALOPECIA TOTALIS
     Dosage: 0.12 PCT; TOP
     Route: 061
     Dates: start: 20050808, end: 20060801
  2. OLUX [Suspect]
     Indication: ALOPECIA TOTALIS
     Dosage: 0.05 PCT; BIW; TOP
     Route: 061
     Dates: start: 20050808, end: 20060801
  3. KENALOG [Suspect]
     Indication: ALOPECIA TOTALIS
     Dosage: 15 MG; QM;

REACTIONS (3)
  - ADRENAL NEOPLASM [None]
  - BLOOD CORTISOL DECREASED [None]
  - GROWTH RETARDATION [None]
